FAERS Safety Report 16383563 (Version 1)
Quarter: 2019Q2

REPORT INFORMATION
  Report Type: Spontaneous
  Country: US (occurrence: US)
  Receive Date: 20190426
  Receipt Date: 20190426
  Transmission Date: 20190711
  Serious: No
  Sender: FDA-Public Use
  Company Number: None

PATIENT
  Age: 64 Year
  Sex: Female

DRUGS (2)
  1. AUSTEDO [Suspect]
     Active Substance: DEUTETRABENAZINE
     Indication: FACIAL SPASM
     Dosage: ?          OTHER FREQUENCY:EVERY MORNING;?
     Route: 048
     Dates: start: 20190306
  2. AUSTEDO [Suspect]
     Active Substance: DEUTETRABENAZINE
     Indication: FACIAL SPASM
     Dosage: ?          OTHER FREQUENCY:EVERY EVENING;?
     Route: 048
     Dates: start: 20190306

REACTIONS (1)
  - Weight increased [None]
